FAERS Safety Report 10983066 (Version 1)
Quarter: 2015Q2

REPORT INFORMATION
  Report Type: Spontaneous
  Country: US (occurrence: None)
  Receive Date: 20150402
  Receipt Date: 20150402
  Transmission Date: 20150821
  Serious: Yes (Hospitalization)
  Sender: FDA-Public Use
  Company Number: None

PATIENT
  Age: 63 Year
  Weight: 80 kg

DRUGS (8)
  1. ASPIRIN. [Concomitant]
     Active Substance: ASPIRIN
  2. EXPAREL [Suspect]
     Active Substance: BUPIVACAINE
     Indication: KNEE ARTHROPLASTY
     Route: 058
     Dates: start: 20150331
  3. DIPHENHYDRAMINE [Concomitant]
     Active Substance: DIPHENHYDRAMINE
  4. GLUCOSAMINE/CHONDROITIN [Concomitant]
  5. EXPAREL [Suspect]
     Active Substance: BUPIVACAINE
     Indication: ANALGESIC THERAPY
     Route: 058
     Dates: start: 20150331
  6. LISINOPRIL. [Concomitant]
     Active Substance: LISINOPRIL
  7. LATANOPROST. [Concomitant]
     Active Substance: LATANOPROST
  8. CALCIUM [Concomitant]
     Active Substance: CALCIUM

REACTIONS (3)
  - Aphasia [None]
  - Neurotoxicity [None]
  - Delayed recovery from anaesthesia [None]

NARRATIVE: CASE EVENT DATE: 20150331
